FAERS Safety Report 23145104 (Version 1)
Quarter: 2023Q4

REPORT INFORMATION
  Report Type: Spontaneous
  Country: US (occurrence: US)
  Receive Date: 20231103
  Receipt Date: 20231103
  Transmission Date: 20240110
  Serious: Yes (Other)
  Sender: FDA-Public Use
  Company Number: US-PFIZER INC-202300351158

PATIENT

DRUGS (1)
  1. PAXLOVID [Suspect]
     Active Substance: NIRMATRELVIR\RITONAVIR
     Indication: COVID-19 treatment
     Dosage: UNK

REACTIONS (7)
  - Hypertension [Unknown]
  - Anxiety [Unknown]
  - Restlessness [Unknown]
  - Suffocation feeling [Unknown]
  - Illness [Unknown]
  - Heart rate irregular [Unknown]
  - Malaise [Unknown]
